FAERS Safety Report 4506506-9 (Version None)
Quarter: 2004Q4

REPORT INFORMATION
  Report Type: 
  Country: None (occurrence: None)
  Receive Date: 20041122
  Receipt Date: 20041109
  Transmission Date: 20050328
  Serious: Yes (Life-Threatening, Hospitalization, Other)
  Sender: FDA-Public Use
  Company Number: CH-ABBOTT-04P-151-0280102-00

PATIENT
  Age: 52 Year
  Sex: Male

DRUGS (11)
  1. DEPAKINE CHRONO TABLETS [Suspect]
     Indication: PERSONALITY DISORDER
     Route: 048
  2. DEPAKINE CHRONO TABLETS [Suspect]
     Indication: AFFECT LABILITY
  3. MIRTAZAPINE [Suspect]
     Indication: PERSONALITY DISORDER
     Route: 048
     Dates: end: 20040831
  4. MIRTAZAPINE [Suspect]
     Indication: AFFECT LABILITY
  5. ESOMEPRAZOLE [Suspect]
     Indication: DRUG USE FOR UNKNOWN INDICATION
     Route: 048
  6. METHADONE HCL [Suspect]
     Indication: POLYSUBSTANCE DEPENDENCE
     Route: 048
     Dates: start: 20030101, end: 20040831
  7. BECOZYM [Concomitant]
     Indication: DRUG USE FOR UNKNOWN INDICATION
     Route: 048
  8. THIAMINE HCL [Concomitant]
     Indication: DRUG USE FOR UNKNOWN INDICATION
     Route: 048
  9. ACETYLCYSTEINE [Concomitant]
     Indication: DRUG USE FOR UNKNOWN INDICATION
     Route: 048
     Dates: end: 20040831
  10. OXAZEPAM [Concomitant]
     Indication: DRUG USE FOR UNKNOWN INDICATION
     Route: 048
     Dates: end: 20040831
  11. FUROSEMIDE [Concomitant]
     Indication: DRUG USE FOR UNKNOWN INDICATION

REACTIONS (8)
  - ACTIVITIES OF DAILY LIVING IMPAIRED [None]
  - CARDIAC ARREST [None]
  - ELECTROCARDIOGRAM QT PROLONGED [None]
  - ENCEPHALOPATHY [None]
  - FAECAL INCONTINENCE [None]
  - TORSADE DE POINTES [None]
  - URINARY INCONTINENCE [None]
  - VENTRICULAR FIBRILLATION [None]
